FAERS Safety Report 4703609-0 (Version None)
Quarter: 2005Q2

REPORT INFORMATION
  Report Type: 
  Country: None (occurrence: None)
  Receive Date: 20050630
  Receipt Date: 20050428
  Transmission Date: 20051028
  Serious: Yes (Hospitalization, Disabling)
  Sender: FDA-Public Use
  Company Number: BR-ABBOTT-05P-020-0299290-00

PATIENT
  Sex: Male

DRUGS (14)
  1. RITONAVIR SOFT GELATIN CAPSULES [Suspect]
     Indication: HIV INFECTION
     Route: 048
  2. TENOFOVIR [Concomitant]
     Indication: HIV INFECTION
  3. RITONAVIR [Concomitant]
     Indication: HIV INFECTION
  4. OLANZAPINE [Concomitant]
     Indication: HIV INFECTION
  5. DIDANOSINE [Concomitant]
     Indication: HIV INFECTION
  6. VIREAD [Concomitant]
     Indication: HIV INFECTION
  7. ABACAVIR [Concomitant]
     Indication: HIV INFECTION
  8. FLUCONAZOLE [Concomitant]
     Indication: HIV INFECTION
  9. PRAVASTATIN [Concomitant]
     Indication: HIV INFECTION
  10. AZITHROMYCIN [Concomitant]
     Indication: HIV INFECTION
  11. BACTRIM [Concomitant]
     Indication: HIV INFECTION
  12. ABACAVIR SULFATE [Concomitant]
     Indication: HIV INFECTION
  13. TIPRANAVIR [Concomitant]
     Indication: HIV INFECTION
  14. RITONAVIR [Concomitant]

REACTIONS (5)
  - BRAIN MASS [None]
  - HYPERHIDROSIS [None]
  - NERVOUS SYSTEM DISORDER [None]
  - PYREXIA [None]
  - SOMNOLENCE [None]
